FAERS Safety Report 14892707 (Version 3)
Quarter: 2018Q2

REPORT INFORMATION
  Report Type: Report from Study
  Country: US (occurrence: US)
  Receive Date: 20180514
  Receipt Date: 20180522
  Transmission Date: 20180711
  Serious: Yes (Death, Other)
  Sender: FDA-Public Use
  Company Number: US-GLAXOSMITHKLINE-US2018GSK084210

PATIENT
  Age: 39 Year
  Sex: Female
  Weight: 74.4 kg

DRUGS (25)
  1. NORVASC [Concomitant]
     Active Substance: AMLODIPINE BESYLATE
  2. ZYRTEC [Concomitant]
     Active Substance: CETIRIZINE HYDROCHLORIDE
  3. CYMBALTA [Concomitant]
     Active Substance: DULOXETINE HYDROCHLORIDE
  4. PHOSLO [Concomitant]
     Active Substance: CALCIUM ACETATE
  5. NEURONTIN [Concomitant]
     Active Substance: GABAPENTIN
  6. MEVACOR [Concomitant]
     Active Substance: LOVASTATIN
  7. THERAGRAN [Concomitant]
     Active Substance: VITAMINS
  8. ZOFRAN [Concomitant]
     Active Substance: ONDANSETRON HYDROCHLORIDE
  9. BELIMUMAB [Suspect]
     Active Substance: BELIMUMAB
     Indication: PROPHYLAXIS
     Dosage: 750 MG, CYC
     Route: 042
     Dates: start: 20171214, end: 20180417
  10. BORTEZOMIB [Suspect]
     Active Substance: BORTEZOMIB
     Indication: PROPHYLAXIS
     Dosage: 2.4 MG, CYC
     Route: 040
     Dates: start: 20171214, end: 20180123
  11. ROCALTROL [Concomitant]
     Active Substance: CALCITRIOL
  12. ARANESP [Concomitant]
     Active Substance: DARBEPOETIN ALFA
  13. AURYXIA [Concomitant]
     Active Substance: TETRAFERRIC TRICITRATE DECAHYDRATE
  14. HUMALOG KWIKPEN [Concomitant]
     Active Substance: INSULIN LISPRO
  15. SENOKOT [Concomitant]
     Active Substance: SENNOSIDES
  16. COMPAZINE [Concomitant]
     Active Substance: PROCHLORPERAZINE MALEATE
  17. IMODIUM [Concomitant]
     Active Substance: LOPERAMIDE HYDROCHLORIDE
  18. QVAR [Concomitant]
     Active Substance: BECLOMETHASONE DIPROPIONATE
  19. PRILOSEC [Concomitant]
     Active Substance: OMEPRAZOLE MAGNESIUM
  20. RENVELA [Concomitant]
     Active Substance: SEVELAMER CARBONATE
  21. TRESIBA [Concomitant]
     Active Substance: INSULIN DEGLUDEC
  22. LOPRESSOR [Concomitant]
     Active Substance: METOPROLOL TARTRATE
  23. PROGRAF [Concomitant]
     Active Substance: TACROLIMUS\TACROLIMUS ANHYDROUS
  24. SENSIPAR [Concomitant]
     Active Substance: CINACALCET HYDROCHLORIDE
  25. GLUCOSAMINE RELIEF [Concomitant]

REACTIONS (1)
  - Death [Fatal]

NARRATIVE: CASE EVENT DATE: 20180508
